FAERS Safety Report 8856370 (Version 1)
Quarter: 2012Q4

REPORT INFORMATION
  Report Type: Spontaneous
  Country: US (occurrence: None)
  Receive Date: 20121024
  Receipt Date: 20121024
  Transmission Date: 20130627
  Serious: Yes (Hospitalization)
  Sender: FDA-Public Use
  Company Number: None

PATIENT
  Age: 57 Year
  Sex: Male
  Weight: 136.08 kg

DRUGS (3)
  1. METHYLPREDNISOLONE ACETATE [Suspect]
     Indication: LOW BACK PAIN
     Route: 008
     Dates: start: 20120910
  2. METHYLPREDNISOLONE ACETATE [Suspect]
     Indication: LOW BACK PAIN
     Route: 008
     Dates: start: 20120924
  3. OMNIPAQUE PF [Concomitant]

REACTIONS (1)
  - Hospitalisation [None]
